FAERS Safety Report 15626788 (Version 1)
Quarter: 2018Q4

REPORT INFORMATION
  Report Type: Spontaneous
  Country: US (occurrence: US)
  Receive Date: 20181116
  Receipt Date: 20181116
  Transmission Date: 20190205
  Serious: Yes (Other)
  Sender: FDA-Public Use
  Company Number: US-MYLANLABS-2018M1085715

PATIENT
  Sex: Female
  Weight: 45 kg

DRUGS (1)
  1. TOBRAMYCIN. [Suspect]
     Active Substance: TOBRAMYCIN
     Indication: BRONCHIECTASIS
     Dosage: UNK, BID

REACTIONS (5)
  - Cough [Unknown]
  - Throat irritation [Unknown]
  - Incorrect product administration duration [Unknown]
  - Malaise [Unknown]
  - Oropharyngeal pain [Unknown]
